FAERS Safety Report 4766705-8 (Version None)
Quarter: 2005Q3

REPORT INFORMATION
  Report Type: 
  Country: None (occurrence: None)
  Receive Date: 20050908
  Receipt Date: 20050823
  Transmission Date: 20060218
  Serious: Yes (Hospitalization)
  Sender: FDA-Public Use
  Company Number: THYR-10255

PATIENT
  Age: 38 Year
  Sex: Male
  Weight: 70.9 kg

DRUGS (3)
  1. THYROGEN [Suspect]
     Dosage: 0.1 MG ONCE IM
     Route: 030
     Dates: start: 20050627, end: 20050627
  2. FLAGYL [Concomitant]
  3. ZOSYN [Concomitant]

REACTIONS (16)
  - APPENDIX DISORDER [None]
  - BACTERAEMIA [None]
  - BACTERIAL INFECTION [None]
  - BLOOD CULTURE POSITIVE [None]
  - CHOLECYSTITIS [None]
  - DIVERTICULITIS [None]
  - ESCHERICHIA INFECTION [None]
  - GASTRITIS [None]
  - GASTROENTERITIS [None]
  - GASTROINTESTINAL INFLAMMATION [None]
  - HAEMATOCRIT DECREASED [None]
  - HELICOBACTER INFECTION [None]
  - LABORATORY TEST INTERFERENCE [None]
  - LIPASE INCREASED [None]
  - PSEUDOMONAS INFECTION [None]
  - SEPSIS [None]
